FAERS Safety Report 9306571 (Version 1)
Quarter: 2013Q2

REPORT INFORMATION
  Report Type: Spontaneous
  Country: GB (occurrence: GB)
  Receive Date: 20130523
  Receipt Date: 20130523
  Transmission Date: 20140414
  Serious: Yes (Hospitalization)
  Sender: FDA-Public Use
  Company Number: GB-ROXANE LABORATORIES, INC.-2013-RO-00832RO

PATIENT
  Age: 45 Year
  Sex: Male

DRUGS (4)
  1. RISPERIDONE [Suspect]
     Indication: SCHIZOAFFECTIVE DISORDER
     Dosage: 2 MG
  2. RISPERIDONE [Suspect]
     Dosage: 4 MG
  3. SODIUM VALPROATE [Suspect]
     Indication: SCHIZOAFFECTIVE DISORDER
     Dosage: 1500 MG
  4. SODIUM VALPROATE [Suspect]
     Dosage: 2000 MG

REACTIONS (2)
  - Priapism [Recovered/Resolved]
  - Ischaemia [Recovered/Resolved]
